FAERS Safety Report 15164483 (Version 3)
Quarter: 2018Q4

REPORT INFORMATION
  Report Type: Report from Study
  Country: CA (occurrence: CA)
  Receive Date: 20180719
  Receipt Date: 20181213
  Transmission Date: 20190204
  Serious: Yes (Other)
  Sender: FDA-Public Use
  Company Number: CA-OREXIGEN THERAPEUTICS INC.-2018-005141

PATIENT

DRUGS (6)
  1. CONTRAVE [Suspect]
     Active Substance: BUPROPION HYDROCHLORIDE\NALTREXONE HYDROCHLORIDE
     Indication: WEIGHT CONTROL
     Dosage: 2/2 (WILL TAKES LESS IF NOT FEELING WELL) WEEK 1 - 1 TABLET DAILY (1 DOSAGE FORMS, 1 IN 1 D)
     Route: 048
     Dates: start: 20180409, end: 201805
  2. CONTRAVE [Suspect]
     Active Substance: BUPROPION HYDROCHLORIDE\NALTREXONE HYDROCHLORIDE
     Dosage: 2 TABLETS IN THE MORNING AND 2 IN THE EVENING (WEEK 4) (2 DOSAGE FORMS,2 IN 1 D)
     Route: 048
     Dates: start: 2018, end: 20180801
  3. CONTRAVE [Suspect]
     Active Substance: BUPROPION HYDROCHLORIDE\NALTREXONE HYDROCHLORIDE
     Dosage: 2 TABLETS IN THE MORNING AND ONE IN THE EVENING (WEEK 3) (3 IN 1 D)
     Route: 048
     Dates: start: 2018, end: 2018
  4. CONTRAVE [Suspect]
     Active Substance: BUPROPION HYDROCHLORIDE\NALTREXONE HYDROCHLORIDE
     Dosage: 1 TABLET IN MORNING AND ONE IN EVENING (WEEK 2) (1 DOSAGE FORMS,2 IN 1 D)
     Route: 048
     Dates: start: 20180501, end: 2018
  5. PANTOLOC                           /01263201/ [Concomitant]
     Active Substance: PANTOPRAZOLE SODIUM
     Indication: PROPHYLAXIS
     Dosage: UNK
     Route: 065
  6. ARTHROTEC [Concomitant]
     Active Substance: DICLOFENAC SODIUM\MISOPROSTOL
     Indication: OSTEOARTHRITIS
     Dosage: UNK
     Route: 065

REACTIONS (5)
  - Menorrhagia [Recovered/Resolved]
  - Hot flush [Recovered/Resolved]
  - Inappropriate schedule of product administration [Recovered/Resolved]
  - Drug effect incomplete [Recovered/Resolved]
  - Nausea [Recovered/Resolved]

NARRATIVE: CASE EVENT DATE: 20180409
